FAERS Safety Report 5678090-8 (Version None)
Quarter: 2008Q1

REPORT INFORMATION
  Report Type: 
  Country: None (occurrence: None)
  Receive Date: 20080324
  Receipt Date: 20080324
  Transmission Date: 20080703
  Serious: Yes (Other)
  Sender: FDA-Public Use
  Company Number: None

PATIENT

DRUGS (3)
  1. DEPO-MEDROL [Suspect]
     Indication: BACK INJURY
  2. DEPO-MEDROL [Suspect]
     Indication: FALL
  3. OIL BASED DYE MYLEGRAM [Suspect]

REACTIONS (7)
  - ARACHNOIDITIS [None]
  - CONDITION AGGRAVATED [None]
  - ECONOMIC PROBLEM [None]
  - HEADACHE [None]
  - MEDICATION ERROR [None]
  - SPINAL DISORDER [None]
  - SYRINGOMYELIA [None]
